FAERS Safety Report 12719040 (Version 1)
Quarter: 2016Q3

REPORT INFORMATION
  Report Type: Spontaneous
  Country: US (occurrence: US)
  Receive Date: 20160906
  Receipt Date: 20160906
  Transmission Date: 20161109
  Serious: Yes (Hospitalization)
  Sender: FDA-Public Use
  Company Number: US-ASTRAZENECA-2015SE84814

PATIENT
  Age: 28879 Day
  Sex: Female
  Weight: 70.3 kg

DRUGS (11)
  1. FLONASE [Concomitant]
     Active Substance: FLUTICASONE PROPIONATE
     Indication: SINUS DISORDER
     Dosage: NASAL SPRAY, 2 PUFFS TWICE A DAY
  2. CRESTOR [Suspect]
     Active Substance: ROSUVASTATIN CALCIUM
     Indication: BLOOD CHOLESTEROL INCREASED
     Route: 048
     Dates: start: 20140710
  3. PROTONIX [Concomitant]
     Active Substance: PANTOPRAZOLE SODIUM
     Indication: GASTROOESOPHAGEAL REFLUX DISEASE
     Dates: start: 2005
  4. IRBESARTAN. [Concomitant]
     Active Substance: IRBESARTAN
     Indication: HYPERTENSION
  5. TOPROL XL [Suspect]
     Active Substance: METOPROLOL SUCCINATE
     Indication: HEART RATE ABNORMAL
     Route: 048
     Dates: end: 20160825
  6. CRESTOR [Suspect]
     Active Substance: ROSUVASTATIN CALCIUM
     Indication: BLOOD CHOLESTEROL INCREASED
     Route: 048
     Dates: start: 2013
  7. ASPIRIN. [Concomitant]
     Active Substance: ASPIRIN
     Dates: start: 2001
  8. COQ10 [Concomitant]
     Active Substance: UBIDECARENONE
     Indication: PROPHYLAXIS AGAINST RH ISOIMMUNISATION
     Dates: start: 2010
  9. TOPROL XL [Suspect]
     Active Substance: METOPROLOL SUCCINATE
     Indication: PULSE ABNORMAL
     Route: 048
     Dates: end: 20160825
  10. WARFARIN SODIUM. [Concomitant]
     Active Substance: WARFARIN SODIUM
     Indication: CEREBROVASCULAR ACCIDENT
     Dosage: 5 MG ON MONDAYS AND FRIDAYS AND 2.5 MG ALL OTHER DAYS
     Dates: start: 2001
  11. TYLENOL [Concomitant]
     Active Substance: ACETAMINOPHEN
     Indication: PAIN
     Dosage: 325 MG OR 500MG AS NEEDED

REACTIONS (11)
  - Drug dose omission [Unknown]
  - Drug ineffective [Unknown]
  - Fatigue [Unknown]
  - Adverse event [Unknown]
  - Extrasystoles [Unknown]
  - Constipation [Unknown]
  - Depression [Unknown]
  - Feeling abnormal [Unknown]
  - Heart rate decreased [Unknown]
  - Asthenia [Unknown]
  - Movement disorder [Unknown]

NARRATIVE: CASE EVENT DATE: 20160705
